FAERS Safety Report 6241202-1 (Version None)
Quarter: 2009Q2

REPORT INFORMATION
  Report Type: 
  Country: None (occurrence: None)
  Receive Date: 20090619
  Receipt Date: 20090619
  Transmission Date: 20091009
  Serious: No
  Sender: FDA-Public Use
  Company Number: None

PATIENT
  Age: 38 Year
  Sex: Female
  Weight: 117.9352 kg

DRUGS (2)
  1. ZICAM NASAL SWABS MATRIXX [Suspect]
     Indication: NASOPHARYNGITIS
     Dosage: 1 TIME NASAL
     Route: 045
     Dates: start: 20070201, end: 20070201
  2. CLARITIN-D [Concomitant]

REACTIONS (1)
  - ANOSMIA [None]
